FAERS Safety Report 5390566-X (Version None)
Quarter: 2007Q3

REPORT INFORMATION
  Report Type: 
  Country: None (occurrence: None)
  Receive Date: 20070712
  Receipt Date: 20070517
  Transmission Date: 20080115
  Serious: Yes (Hospitalization)
  Sender: FDA-Public Use
  Company Number: 6033536

PATIENT
  Age: 3 Day
  Sex: Male
  Weight: 2.75 kg

DRUGS (3)
  1. ENALAPRIL MALEATE [Suspect]
     Indication: CARDIAC FAILURE CONGESTIVE
     Dosage: 0,1 MG/KG (0,1 MG/KG,1 IN 1 D),ORAL
     Route: 048
  2. FUROSEMIDE [Concomitant]
  3. DIGOXIN [Concomitant]

REACTIONS (4)
  - ESCHERICHIA SEPSIS [None]
  - PERITONEAL DIALYSIS [None]
  - PERITONITIS [None]
  - RENAL FAILURE NEONATAL [None]
